FAERS Safety Report 10475520 (Version 1)
Quarter: 2014Q3

REPORT INFORMATION
  Report Type: Spontaneous
  Country: DE (occurrence: DE)
  Receive Date: 20140925
  Receipt Date: 20140925
  Transmission Date: 20150326
  Serious: Yes (Other)
  Sender: FDA-Public Use
  Company Number: DE-BRISTOL-MYERS SQUIBB COMPANY-21401971

PATIENT
  Age: 74 Year
  Sex: Female

DRUGS (1)
  1. LITALIR CAPS 500 MG [Suspect]
     Active Substance: HYDROXYUREA
     Indication: THROMBOCYTOSIS

REACTIONS (1)
  - Brain stem infarction [Unknown]

NARRATIVE: CASE EVENT DATE: 20140717
